FAERS Safety Report 4868111-4 (Version None)
Quarter: 2005Q4

REPORT INFORMATION
  Report Type: 
  Country: None (occurrence: None)
  Receive Date: 20051229
  Receipt Date: 20051228
  Transmission Date: 20060501
  Serious: Yes (Life-Threatening)
  Sender: FDA-Public Use
  Company Number: 2005SE07461

PATIENT
  Age: 28785 Day
  Sex: Male
  Weight: 51 kg

DRUGS (9)
  1. BLOPRESS [Suspect]
     Indication: ESSENTIAL HYPERTENSION
     Route: 048
     Dates: start: 20050808
  2. ACTOS [Suspect]
     Indication: DIABETES MELLITUS NON-INSULIN-DEPENDENT
     Route: 048
     Dates: start: 20051117, end: 20051123
  3. ACTOS [Suspect]
     Route: 048
     Dates: start: 20051207
  4. AMARYL [Suspect]
     Indication: DIABETES MELLITUS NON-INSULIN-DEPENDENT
     Route: 048
     Dates: start: 20050909, end: 20051116
  5. AMARYL [Suspect]
     Route: 048
     Dates: start: 20051117, end: 20051123
  6. AMARYL [Suspect]
     Route: 048
     Dates: start: 20051124, end: 20051124
  7. STARSIS [Suspect]
     Indication: DIABETES MELLITUS NON-INSULIN-DEPENDENT
     Route: 048
     Dates: start: 20050803
  8. BASEN [Suspect]
     Indication: DIABETES MELLITUS NON-INSULIN-DEPENDENT
     Route: 048
     Dates: start: 20050808, end: 20051206
  9. BASEN [Suspect]
     Route: 048
     Dates: start: 20051207

REACTIONS (5)
  - BLOOD GLUCOSE INCREASED [None]
  - HYPOGLYCAEMIA [None]
  - HYPOGLYCAEMIC COMA [None]
  - LOSS OF CONSCIOUSNESS [None]
  - TREMOR [None]
